FAERS Safety Report 9462065 (Version 1)
Quarter: 2013Q3

REPORT INFORMATION
  Report Type: Spontaneous
  Country: US (occurrence: None)
  Receive Date: 20130815
  Receipt Date: 20130815
  Transmission Date: 20140515
  Serious: Yes (Hospitalization)
  Sender: FDA-Public Use
  Company Number: None

PATIENT
  Age: 57 Year
  Sex: Male
  Weight: 70.5 kg

DRUGS (10)
  1. MS CONTIN [Suspect]
     Indication: PAIN
     Dosage: RECENT, 15MG, Q NOON, PO
     Route: 048
  2. TRIMETHOBENZAMIDE [Concomitant]
  3. METOCLOPRAMIDE [Concomitant]
  4. FAMOTIDINE [Concomitant]
  5. ESOMEPRAZOLE [Concomitant]
  6. NOVOLOG [Concomitant]
  7. NORCO [Concomitant]
  8. SERTRALINE [Concomitant]
  9. LANTUS [Concomitant]
  10. FLEXERIL [Concomitant]

REACTIONS (4)
  - Somnolence [None]
  - Hypophagia [None]
  - Diabetic ketoacidosis [None]
  - Urinary tract infection [None]
